FAERS Safety Report 5265940-2 (Version None)
Quarter: 2007Q1

REPORT INFORMATION
  Report Type: 
  Country: None (occurrence: None)
  Receive Date: 20070312
  Receipt Date: 20070312
  Transmission Date: 20070707
  Serious: Yes (Death, Disabling, Other)
  Sender: FDA-Public Use
  Company Number: None

PATIENT
  Age: 85 Year
  Sex: Female
  Weight: 125 kg

DRUGS (1)
  1. EPOETIN ALFA [Suspect]
     Indication: HAEMOGLOBIN DECREASED
     Dates: start: 20070209, end: 20070228

REACTIONS (2)
  - CARDIAC ARREST [None]
  - RENAL FAILURE [None]
